FAERS Safety Report 23779229 (Version 2)
Quarter: 2024Q2

REPORT INFORMATION
  Report Type: Report from Study
  Country: US (occurrence: US)
  Receive Date: 20240424
  Receipt Date: 20240429
  Transmission Date: 20240716
  Serious: Yes (Death, Hospitalization, Other)
  Sender: FDA-Public Use
  Company Number: US-TAKEDA-2024TUS036304

PATIENT
  Age: 71 Year
  Sex: Male
  Weight: 58.49 kg

DRUGS (1)
  1. FRUQUINTINIB [Suspect]
     Active Substance: FRUQUINTINIB
     Indication: Colon cancer
     Dosage: 5 MILLIGRAM
     Route: 048
     Dates: start: 20240330

REACTIONS (7)
  - Death [Fatal]
  - Oedema peripheral [Unknown]
  - Back pain [Unknown]
  - Dyspnoea [Unknown]
  - Metastases to liver [Unknown]
  - Metastases to lung [Unknown]
  - Jaundice [Unknown]

NARRATIVE: CASE EVENT DATE: 20240401
